FAERS Safety Report 5490072-8 (Version None)
Quarter: 2007Q4

REPORT INFORMATION
  Report Type: 
  Country: None (occurrence: None)
  Receive Date: 20071018
  Receipt Date: 20071015
  Transmission Date: 20080405
  Serious: Yes (Hospitalization)
  Sender: FDA-Public Use
  Company Number: AU-ROXANE LABORATORIES, INC-2007-BP-22747RO

PATIENT
  Age: 64 Year
  Sex: Male
  Weight: 80 kg

DRUGS (13)
  1. CYCLOPHOSPHAMIDE [Suspect]
     Indication: FOLLICLE CENTRE LYMPHOMA, FOLLICULAR GRADE I, II, III
  2. PREDNISONE [Suspect]
     Indication: FOLLICLE CENTRE LYMPHOMA, FOLLICULAR GRADE I, II, III
  3. VINCRISTINE [Suspect]
     Indication: FOLLICLE CENTRE LYMPHOMA, FOLLICULAR GRADE I, II, III
  4. ADRIAMYCIN PFS [Suspect]
     Indication: FOLLICLE CENTRE LYMPHOMA, FOLLICULAR GRADE I, II, III
  5. BROADSPECTRUM ANTIBIOTICS [Concomitant]
     Indication: PNEUMONIA
  6. PENICILLIN G [Concomitant]
     Indication: EVIDENCE BASED TREATMENT
  7. TIMENTIN [Concomitant]
     Indication: EVIDENCE BASED TREATMENT
  8. GENTAMICIN [Concomitant]
     Indication: EVIDENCE BASED TREATMENT
  9. AZYTHROMYCIN [Concomitant]
     Indication: EVIDENCE BASED TREATMENT
  10. TRYMETHOPRIM-SULPHAMETOXAZOL [Concomitant]
     Indication: EVIDENCE BASED TREATMENT
  11. CEFEPIME [Concomitant]
     Indication: EVIDENCE BASED TREATMENT
  12. MEROPENEM [Concomitant]
     Indication: EVIDENCE BASED TREATMENT
  13. FLUCONAZOLE [Concomitant]
     Indication: ANTIFUNGAL PROPHYLAXIS

REACTIONS (2)
  - ACUTE RESPIRATORY DISTRESS SYNDROME [None]
  - PULMONARY FIBROSIS [None]
